FAERS Safety Report 7585369-1 (Version None)
Quarter: 2011Q3

REPORT INFORMATION
  Report Type: 
  Country: None (occurrence: None)
  Receive Date: 20110701
  Receipt Date: 20090316
  Transmission Date: 20111222
  Serious: Yes (Hospitalization, Other)
  Sender: FDA-Public Use
  Company Number: US-BAYER-200915573NA

PATIENT
  Age: 59 Year
  Sex: Male
  Weight: 136 kg

DRUGS (21)
  1. TRASYLOL [Suspect]
     Dosage: 25 CC/HOUR
     Route: 042
     Dates: start: 20021101, end: 20021101
  2. HEPARIN [Concomitant]
     Dosage: UNK
     Route: 042
     Dates: start: 20021101, end: 20021101
  3. LIPITOR [Concomitant]
     Dosage: 20 MG, QD
     Route: 048
  4. ALTACE [Concomitant]
     Dosage: 5 MG, UNK
     Route: 048
  5. XENICAL [Concomitant]
     Dosage: 120 MG, QD
     Route: 048
  6. SOLU-MEDROL [Concomitant]
     Dosage: UNK
     Route: 042
     Dates: start: 20021101, end: 20021101
  7. LIDOCAINE [Concomitant]
     Dosage: UNK
     Dates: start: 20021101, end: 20021101
  8. TRASYLOL [Suspect]
     Indication: CORONARY ARTERY BYPASS
     Dosage: 100 ML
     Route: 042
     Dates: start: 20021101, end: 20021101
  9. PROTAMINE SULFATE [Concomitant]
     Dosage: UNK
     Dates: start: 20021101, end: 20021101
  10. SODIUM BICARBONATE [Concomitant]
     Dosage: UNK
     Dates: start: 20021101, end: 20021101
  11. INSULIN [Concomitant]
     Dosage: 80 U, PM
     Route: 058
  12. MANNITOL [Concomitant]
     Dosage: UNK
     Dates: start: 20021101, end: 20021101
  13. INSULIN [Concomitant]
     Indication: DIABETES MELLITUS
     Dosage: UNK
     Route: 042
     Dates: start: 20021101
  14. VERSED [Concomitant]
     Dosage: UNK
     Route: 042
     Dates: start: 20021101, end: 20021101
  15. DIPRIVAN [Concomitant]
     Dosage: UNK
     Route: 042
     Dates: start: 20021101, end: 20021101
  16. ANCEF [Concomitant]
     Dosage: UNK
     Route: 042
     Dates: start: 20021101
  17. PLAVIX [Concomitant]
     Dosage: 75 MG, QD
     Route: 048
  18. PHENYLEPHRINE HCL [Concomitant]
     Dosage: UNK
     Dates: start: 20021101, end: 20021101
  19. TRASYLOL [Suspect]
     Dosage: 140 MG, UNK
     Route: 042
     Dates: start: 20021101, end: 20021101
  20. LOPID [Concomitant]
     Dosage: 600 MG, QD
     Route: 048
  21. PAPAVERINE [Concomitant]
     Dosage: UNK
     Dates: start: 20021101, end: 20021101

REACTIONS (10)
  - UNEVALUABLE EVENT [None]
  - ANHEDONIA [None]
  - ADVERSE EVENT [None]
  - RENAL IMPAIRMENT [None]
  - PAIN [None]
  - DEPRESSION [None]
  - ANXIETY [None]
  - FEAR [None]
  - RENAL FAILURE [None]
  - INJURY [None]
